FAERS Safety Report 19441513 (Version 2)
Quarter: 2021Q3

REPORT INFORMATION
  Report Type: Spontaneous
  Country: CO (occurrence: CO)
  Receive Date: 20210621
  Receipt Date: 20210701
  Transmission Date: 20211014
  Serious: Yes (Other)
  Sender: FDA-Public Use
  Company Number: CO-BEH-2021133099

PATIENT
  Age: 9 Year
  Sex: Female
  Weight: 35.7 kg

DRUGS (4)
  1. HAEMATE P [Suspect]
     Active Substance: ANTIHEMOPHILIC FACTOR HUMAN
     Indication: VON WILLEBRAND^S DISEASE
     Dosage: 1200 INTERNATIONAL UNIT, BIW
     Route: 042
     Dates: start: 20210616
  2. HAEMATE P [Suspect]
     Active Substance: ANTIHEMOPHILIC FACTOR HUMAN
     Indication: VON WILLEBRAND^S DISEASE
     Dosage: 1200 INTERNATIONAL UNIT, BIW
     Route: 042
     Dates: start: 20210616
  3. HAEMATE P [Suspect]
     Active Substance: ANTIHEMOPHILIC FACTOR HUMAN
     Indication: PROPHYLAXIS
  4. HAEMATE P [Suspect]
     Active Substance: ANTIHEMOPHILIC FACTOR HUMAN
     Indication: PROPHYLAXIS

REACTIONS (3)
  - Administration site pain [Unknown]
  - Liquid product physical issue [Unknown]
  - Administration site discomfort [Unknown]

NARRATIVE: CASE EVENT DATE: 20210616
